FAERS Safety Report 23326916 (Version 1)
Quarter: 2023Q4

REPORT INFORMATION
  Report Type: Spontaneous
  Country: US (occurrence: US)
  Receive Date: 20231221
  Receipt Date: 20231221
  Transmission Date: 20240110
  Serious: Yes (Death, Other)
  Sender: FDA-Public Use
  Company Number: US-002147023-NVSC2023US268768

PATIENT
  Sex: Female

DRUGS (1)
  1. KISQALI [Suspect]
     Active Substance: RIBOCICLIB
     Indication: Breast cancer stage IV
     Dosage: UNK
     Route: 065

REACTIONS (3)
  - Death [Fatal]
  - Metastases to spine [Unknown]
  - Metastases to bone [Unknown]

NARRATIVE: CASE EVENT DATE: 20180410
